FAERS Safety Report 8102010 (Version 3)
Quarter: 2016Q4

REPORT INFORMATION
  Report Type: Spontaneous
  Country: US (occurrence: US)
  Receive Date: 20110823
  Receipt Date: 20161214
  Transmission Date: 20170207
  Serious: Yes (Other)
  Sender: FDA-Public Use
  Company Number: US-ROCHE-793723

PATIENT
  Age: 20 Year
  Sex: Male
  Weight: 95.3 kg

DRUGS (1)
  1. ACCUTANE [Suspect]
     Active Substance: ISOTRETINOIN
     Indication: ACNE CYSTIC
     Route: 065
     Dates: start: 19971212, end: 199808

REACTIONS (13)
  - Rectal haemorrhage [Unknown]
  - Gastrointestinal disorder [Unknown]
  - Peptic ulcer [Unknown]
  - Blood cholesterol increased [Unknown]
  - Abdominal pain [Unknown]
  - Inflammatory bowel disease [Unknown]
  - Haematochezia [Unknown]
  - Depression [Unknown]
  - Morbid thoughts [Unknown]
  - Dry skin [Unknown]
  - Blood triglycerides increased [Unknown]
  - Ulcer haemorrhage [Unknown]
  - Cheilitis [Unknown]

NARRATIVE: CASE EVENT DATE: 19980112
